FAERS Safety Report 18638500 (Version 1)
Quarter: 2020Q4

REPORT INFORMATION
  Report Type: Spontaneous
  Country: HU (occurrence: HU)
  Receive Date: 20201218
  Receipt Date: 20201218
  Transmission Date: 20210114
  Serious: Yes (Other)
  Sender: FDA-Public Use
  Company Number: HU-BAUSCH-BL-2020-037415

PATIENT
  Age: 59 Year
  Sex: Male

DRUGS (5)
  1. DICLOFENAC [Suspect]
     Active Substance: DICLOFENAC
     Indication: MUSCULOSKELETAL CHEST PAIN
     Route: 065
     Dates: start: 20181019
  2. DABRAFENIB [Suspect]
     Active Substance: DABRAFENIB
     Indication: METASTATIC MALIGNANT MELANOMA
     Route: 065
     Dates: start: 20190304, end: 2019
  3. TRAMETINIB [Suspect]
     Active Substance: TRAMETINIB
     Indication: METASTATIC MALIGNANT MELANOMA
     Route: 065
     Dates: start: 20190304, end: 2019
  4. TRAMETINIB [Suspect]
     Active Substance: TRAMETINIB
     Route: 065
     Dates: start: 2019
  5. DABRAFENIB [Suspect]
     Active Substance: DABRAFENIB
     Route: 065
     Dates: start: 2019

REACTIONS (27)
  - Procalcitonin increased [Recovered/Resolved]
  - Asthenia [Recovered/Resolved]
  - Abdominal abscess [Unknown]
  - Metastases to liver [Recovered/Resolved]
  - Intestinal metastasis [Recovered/Resolved]
  - Malaise [Recovered/Resolved]
  - Metastases to stomach [Recovered/Resolved]
  - Gastrointestinal wall thickening [Unknown]
  - Metastases to lung [Recovered/Resolved]
  - Mesenteric neoplasm [Unknown]
  - Inflammation [Recovered/Resolved]
  - Weight decreased [Recovered/Resolved]
  - Blood lactate dehydrogenase increased [Recovering/Resolving]
  - C-reactive protein increased [Recovering/Resolving]
  - Pyrexia [Recovered/Resolved]
  - Intra-abdominal fluid collection [Unknown]
  - Vomiting [Recovered/Resolved]
  - Abdominal lymphadenopathy [Unknown]
  - Pain [Recovered/Resolved]
  - Metastasis [Recovered/Resolved]
  - Inflammatory bowel disease [Unknown]
  - Intestinal perforation [Unknown]
  - Abdominal pain [Recovered/Resolved]
  - Metastases to peritoneum [Recovered/Resolved]
  - Tumour invasion [Recovered/Resolved]
  - Gastrointestinal disorder [Recovered/Resolved]
  - White blood cell count abnormal [Unknown]

NARRATIVE: CASE EVENT DATE: 20181221
